FAERS Safety Report 5808752-0 (Version None)
Quarter: 2008Q3

REPORT INFORMATION
  Report Type: 
  Country: None (occurrence: None)
  Receive Date: 20080714
  Receipt Date: 20080708
  Transmission Date: 20090109
  Serious: Yes (Hospitalization)
  Sender: FDA-Public Use
  Company Number: US-BRISTOL-MYERS SQUIBB COMPANY-14253066

PATIENT
  Age: 46 Year
  Sex: Male
  Weight: 78 kg

DRUGS (2)
  1. CISPLATIN [Suspect]
     Indication: HEAD AND NECK CANCER
     Dosage: INITIATED ON 20MAY08
     Dates: start: 20080617, end: 20080617
  2. RADIATION THERAPY [Suspect]
     Indication: HEAD AND NECK CANCER
     Dosage: 1 DOSAGEFOM=5000GY.IMRT. STARTED-20MAY08. NO OF FRACTION=35.
     Dates: start: 20080624, end: 20080624

REACTIONS (1)
  - STOMATITIS [None]
